FAERS Safety Report 6790736-X (Version None)
Quarter: 2010Q2

REPORT INFORMATION
  Report Type: 
  Country: None (occurrence: None)
  Receive Date: 20100624
  Receipt Date: 20100613
  Transmission Date: 20101027
  Serious: Yes (Other)
  Sender: FDA-Public Use
  Company Number: US-SANOFI-AVENTIS-2010SA034938

PATIENT
  Age: 78 Year
  Sex: Female

DRUGS (4)
  1. LANTUS [Suspect]
     Indication: TYPE 2 DIABETES MELLITUS
     Dosage: DOSE:30 UNIT(S)
     Route: 058
  2. NOVOLOG [Suspect]
  3. COUMADIN [Suspect]
  4. SOLOSTAR [Suspect]

REACTIONS (1)
  - SUBDURAL HAEMATOMA [None]
